FAERS Safety Report 4889318-6 (Version None)
Quarter: 2006Q1

REPORT INFORMATION
  Report Type: 
  Country: None (occurrence: None)
  Receive Date: 20060120
  Receipt Date: 20060120
  Transmission Date: 20060701
  Serious: Yes (Hospitalization)
  Sender: FDA-Public Use
  Company Number: None

PATIENT
  Age: 57 Year
  Sex: Female

DRUGS (2)
  1. ASPIRIN [Suspect]
     Dosage: 325 MG   EVERY DAY  PO
     Route: 048
  2. PLAVIX [Suspect]
     Dosage: 75 MG  EVERY DAY  PO
     Route: 048

REACTIONS (1)
  - GASTROINTESTINAL HAEMORRHAGE [None]
